FAERS Safety Report 7339687-2 (Version None)
Quarter: 2011Q1

REPORT INFORMATION
  Report Type: 
  Country: None (occurrence: None)
  Receive Date: 20110303
  Receipt Date: 20110303
  Transmission Date: 20110831
  Serious: Yes (Disabling)
  Sender: FDA-Public Use
  Company Number: None

PATIENT
  Age: 70 Year
  Sex: Female
  Weight: 65.318 kg

DRUGS (1)
  1. LEVAQUIN [Suspect]
     Indication: PNEUMONIA
     Dosage: 2 ON DAY 1 1 TAB EACH DAY MOUTH DR. SAID QUIT ON 7 TAB OF 10
     Dates: start: 20101109, end: 20101115

REACTIONS (3)
  - CHEST PAIN [None]
  - TREMOR [None]
  - JOINT CREPITATION [None]
